FAERS Safety Report 13429052 (Version 1)
Quarter: 2017Q2

REPORT INFORMATION
  Report Type: Spontaneous
  Country: PH (occurrence: PH)
  Receive Date: 20170411
  Receipt Date: 20170411
  Transmission Date: 20170830
  Serious: Yes (Hospitalization)
  Sender: FDA-Public Use
  Company Number: PH-ABBVIE-17P-128-1940220-00

PATIENT

DRUGS (1)
  1. ULTANE [Suspect]
     Active Substance: SEVOFLURANE
     Indication: CHOLECYSTECTOMY
     Route: 055

REACTIONS (5)
  - Procedural nausea [Recovered/Resolved]
  - Abdominal pain [Recovered/Resolved]
  - Procedural vomiting [Recovered/Resolved]
  - Postoperative wound infection [Recovered/Resolved]
  - Cholecystectomy [Recovered/Resolved]
